FAERS Safety Report 5304913-8 (Version None)
Quarter: 2007Q2

REPORT INFORMATION
  Report Type: 
  Country: None (occurrence: None)
  Receive Date: 20070423
  Receipt Date: 20070411
  Transmission Date: 20071010
  Serious: Yes (Other)
  Sender: FDA-Public Use
  Company Number: US-PFIZER INC-2007029677

PATIENT

DRUGS (1)
  1. CHANTIX [Suspect]
     Dates: start: 20061209, end: 20061201

REACTIONS (4)
  - IRRITABILITY [None]
  - MEMORY IMPAIRMENT [None]
  - SUICIDAL BEHAVIOUR [None]
  - SUICIDE ATTEMPT [None]
